FAERS Safety Report 13655205 (Version 1)
Quarter: 2017Q2

REPORT INFORMATION
  Report Type: Spontaneous
  Country: US (occurrence: US)
  Receive Date: 20170615
  Receipt Date: 20170615
  Transmission Date: 20170830
  Serious: Yes (Hospitalization, Disabling, Other)
  Sender: FDA-Public Use
  Company Number: US-TEVA-778565USA

PATIENT
  Sex: Male

DRUGS (2)
  1. CORDARONE [Suspect]
     Active Substance: AMIODARONE HYDROCHLORIDE
     Indication: ATRIAL FIBRILLATION
     Route: 065
  2. AMIODARONE [Suspect]
     Active Substance: AMIODARONE
     Indication: ATRIAL FIBRILLATION
     Route: 065

REACTIONS (20)
  - Heart rate irregular [Unknown]
  - Dyspnoea [Unknown]
  - Blindness unilateral [Unknown]
  - Off label use [Unknown]
  - Adverse event [Unknown]
  - Toxicity to various agents [Unknown]
  - Blindness [Unknown]
  - Pulmonary toxicity [Unknown]
  - Visual impairment [Unknown]
  - Respiratory disorder [Unknown]
  - Lung disorder [Unknown]
  - Cough [Unknown]
  - Asthenia [Unknown]
  - Fatigue [Unknown]
  - Chronic obstructive pulmonary disease [Unknown]
  - Visual impairment [Unknown]
  - Dyspnoea [Unknown]
  - Infection [Unknown]
  - Weight decreased [Unknown]
  - Oedema [Unknown]

NARRATIVE: CASE EVENT DATE: 201512
